FAERS Safety Report 5284663-7 (Version None)
Quarter: 2007Q2

REPORT INFORMATION
  Report Type: 
  Country: None (occurrence: None)
  Receive Date: 20070403
  Receipt Date: 20070322
  Transmission Date: 20071010
  Serious: Yes (Death)
  Sender: FDA-Public Use
  Company Number: US-ROCHE-484351

PATIENT
  Age: 77 Year
  Sex: Male
  Weight: 95.7 kg

DRUGS (11)
  1. CAPECITABINE [Suspect]
     Dosage: GIVEN DAY ONE TO EIGHT OF EVERY TWO WEEKS.
     Route: 048
     Dates: start: 20070129
  2. BEVACIZUMAB [Suspect]
     Route: 042
     Dates: start: 20070129
  3. OXALIPLATIN [Suspect]
     Route: 042
     Dates: start: 20070129
  4. VYTORIN [Concomitant]
     Dates: start: 20061003
  5. METFORMIN HCL [Concomitant]
     Dates: start: 20061108
  6. ASPIRIN [Concomitant]
     Dates: start: 20061127
  7. BENADRYL [Concomitant]
     Dates: start: 20070205
  8. LOMOTIL [Concomitant]
     Dates: start: 20070219
  9. CELEBREX [Concomitant]
     Dates: start: 20070219
  10. TRIAMTERENE [Concomitant]
     Dates: start: 20061102
  11. METOPROLOL SUCCINATE [Concomitant]
     Dates: start: 20061127

REACTIONS (1)
  - SHOCK [None]
